FAERS Safety Report 13738748 (Version 1)
Quarter: 2017Q3

REPORT INFORMATION
  Report Type: Report from Study
  Country: US (occurrence: US)
  Receive Date: 20170710
  Receipt Date: 20170710
  Transmission Date: 20171127
  Serious: Yes (Other)
  Sender: FDA-Public Use
  Company Number: US-SAOL THERAPEUTICS-0701112758

PATIENT
  Sex: Female

DRUGS (6)
  1. COMPOUNDED BACLOFEN [Suspect]
     Active Substance: BACLOFEN
     Dosage: 67.71 ?G, \DAY
     Route: 037
     Dates: start: 20150813
  2. BUPIVACAINE. [Suspect]
     Active Substance: BUPIVACAINE
     Dosage: 13.542 MG, \DAY
     Route: 037
     Dates: start: 20150813
  3. MORPHINE [Suspect]
     Active Substance: MORPHINE
     Dosage: 0.4514 MG, \DAY
     Route: 037
     Dates: start: 20150813
  4. COMPOUNDED BACLOFEN [Suspect]
     Active Substance: BACLOFEN
     Dosage: 55.64 ?G, \DAY
     Route: 037
     Dates: end: 20150813
  5. MORPHINE [Suspect]
     Active Substance: MORPHINE
     Dosage: 0.371 MG, \DAY
     Route: 037
     Dates: end: 20150813
  6. BUPIVACAINE. [Suspect]
     Active Substance: BUPIVACAINE
     Dosage: 11.129 MG, \DAY
     Route: 037
     Dates: end: 20150813

REACTIONS (3)
  - Pain [Recovered/Resolved]
  - Complication associated with device [Unknown]
  - Hypoaesthesia [Recovered/Resolved]
